FAERS Safety Report 5661012-3 (Version None)
Quarter: 2008Q1

REPORT INFORMATION
  Report Type: 
  Country: None (occurrence: None)
  Receive Date: 20080311
  Receipt Date: 20080222
  Transmission Date: 20080703
  Serious: No
  Sender: FDA-Public Use
  Company Number: US-BOEHRINGER INGELHEIM GMBH, GERMANY-2008-BP-02803BP

PATIENT
  Age: 88 Year
  Sex: Male

DRUGS (1)
  1. FLOMAX [Suspect]
     Indication: POLLAKIURIA
     Route: 048
     Dates: start: 20080102

REACTIONS (2)
  - DRUG INEFFECTIVE [None]
  - INSOMNIA [None]
